FAERS Safety Report 6447905-8 (Version None)
Quarter: 2009Q4

REPORT INFORMATION
  Report Type: 
  Country: None (occurrence: None)
  Receive Date: 20091120
  Receipt Date: 20091027
  Transmission Date: 20100525
  Serious: Yes (Hospitalization)
  Sender: FDA-Public Use
  Company Number: US-PFIZER INC-2009289931

PATIENT
  Sex: Male

DRUGS (1)
  1. SUNITINIB MALATE [Suspect]
     Indication: RENAL CELL CARCINOMA
     Dosage: 50 MG, UNK
     Route: 048
     Dates: start: 20090702

REACTIONS (3)
  - HAEMATOMA [None]
  - MUSCULAR WEAKNESS [None]
  - PAIN IN EXTREMITY [None]
